FAERS Safety Report 5176435-9 (Version None)
Quarter: 2006Q4

REPORT INFORMATION
  Report Type: 
  Country: None (occurrence: None)
  Receive Date: 20061207
  Receipt Date: 20061121
  Transmission Date: 20070319
  Serious: Yes (Hospitalization)
  Sender: FDA-Public Use
  Company Number: DSA_29039_2006

PATIENT
  Age: 49 Year
  Sex: Male

DRUGS (7)
  1. LORAZEPAM [Suspect]
     Indication: DEPRESSION
     Dosage: DF Q DAY PO
     Route: 048
     Dates: start: 20060803
  2. EFFEXOR [Suspect]
     Indication: DEPRESSION
     Dosage: 200 MG QAM PO
     Route: 048
     Dates: start: 20060803
  3. EFFEXOR [Suspect]
     Indication: DEPRESSION
     Dosage: 150 MG Q DAY PO
     Route: 048
     Dates: start: 20060803
  4. EFFEXOR [Suspect]
     Indication: DEPRESSION
     Dosage: 25 MG 1XNIGHT PO
     Route: 048
     Dates: start: 20060803
  5. DI-HYDAN [Suspect]
     Indication: DEPRESSION
     Dosage: 100 MG QID PO
     Route: 048
     Dates: start: 20060803, end: 20060927
  6. NOOTROPYL [Suspect]
     Indication: DEPRESSION
     Dosage: DF UNK PO
     Route: 048
     Dates: start: 20060803
  7. TERCIAN   /00759301/ [Suspect]
     Indication: DEPRESSION
     Dosage: 110 MG Q DAY PO
     Route: 048
     Dates: start: 20060803, end: 20060927

REACTIONS (2)
  - NEUTROPENIA [None]
  - WHITE BLOOD CELL COUNT DECREASED [None]
